FAERS Safety Report 24356951 (Version 1)
Quarter: 2024Q3

REPORT INFORMATION
  Report Type: Spontaneous
  Country: GR (occurrence: GR)
  Receive Date: 20240924
  Receipt Date: 20240924
  Transmission Date: 20241017
  Serious: Yes (Other)
  Sender: MYLAN
  Company Number: GR-MYLANLABS-2024M1085463

PATIENT
  Age: 62 Year
  Sex: Male

DRUGS (4)
  1. OXALIPLATIN [Suspect]
     Active Substance: OXALIPLATIN
     Indication: Ductal adenocarcinoma of pancreas
     Dosage: UNK
     Route: 065
  2. FLUOROURACIL [Concomitant]
     Active Substance: FLUOROURACIL
     Indication: Ductal adenocarcinoma of pancreas
     Dosage: UNK
     Route: 065
  3. LEUCOVORIN [Concomitant]
     Active Substance: LEUCOVORIN\LEUCOVORIN CALCIUM
     Indication: Ductal adenocarcinoma of pancreas
     Dosage: UNK
     Route: 065
  4. IRINOTECAN [Concomitant]
     Active Substance: IRINOTECAN
     Indication: Ductal adenocarcinoma of pancreas
     Dosage: UNK
     Route: 065

REACTIONS (1)
  - Drug intolerance [Unknown]
